FAERS Safety Report 4810123-0 (Version None)
Quarter: 2005Q4

REPORT INFORMATION
  Report Type: 
  Country: None (occurrence: None)
  Receive Date: 20051024
  Receipt Date: 20051004
  Transmission Date: 20060501
  Serious: Yes (Hospitalization)
  Sender: FDA-Public Use
  Company Number: 2005RR-00892

PATIENT
  Age: 59 Year

DRUGS (4)
  1. AMOXICILLIN [Suspect]
     Dosage: 1 G, BID, ORAL
     Route: 048
     Dates: start: 20020222
  2. CLARITHROMYCIN [Suspect]
     Indication: HELICOBACTER INFECTION
     Dosage: 500 MG, BID, ORAL
     Route: 048
     Dates: start: 20020222
  3. LANSOPRAZOLE [Suspect]
     Indication: HELICOBACTER INFECTION
     Dosage: 30 MG, BID, ORAL
     Route: 048
     Dates: start: 20020222
  4. DICLOFENAC SODIUM [Concomitant]

REACTIONS (2)
  - CHOLESTASIS [None]
  - HEPATOTOXICITY [None]
